FAERS Safety Report 12115363 (Version 4)
Quarter: 2020Q1

REPORT INFORMATION
  Report Type: Spontaneous
  Country: JP (occurrence: NL)
  Receive Date: 20160225
  Receipt Date: 20200223
  Transmission Date: 20200409
  Serious: Yes (Other)
  Sender: FDA-Public Use
  Company Number: NL-ALEXION PHARMACEUTICALS INC-A201601243

PATIENT
  Age: 30 Year
  Sex: Male

DRUGS (2)
  1. SOLIRIS [Suspect]
     Active Substance: ECULIZUMAB
     Dosage: 900 MG, Q2W
     Route: 042
  2. SOLIRIS [Suspect]
     Active Substance: ECULIZUMAB
     Indication: PAROXYSMAL NOCTURNAL HAEMOGLOBINURIA
     Dosage: 600 MG, QW
     Route: 042

REACTIONS (7)
  - Fatigue [Unknown]
  - Injection site reaction [Unknown]
  - Total complement activity increased [Unknown]
  - Haemoglobinuria [Unknown]
  - Haemolysis [Not Recovered/Not Resolved]
  - Influenza [Unknown]
  - Therapeutic product effect incomplete [Unknown]
